FAERS Safety Report 8485070-6 (Version None)
Quarter: 2012Q2

REPORT INFORMATION
  Report Type: 
  Country: None (occurrence: None)
  Receive Date: 20120625
  Receipt Date: 20120614
  Transmission Date: 20120825
  Serious: Yes (Hospitalization, Disabling)
  Sender: FDA-Public Use
  Company Number: UTC-018413

PATIENT
  Age: 64 Year
  Sex: Male
  Weight: 108.6 kg

DRUGS (6)
  1. HYPERTENSION MEDICATIONS (ANTIHYPERTENSIVES) [Concomitant]
  2. DIURETICS (DIURETICS) [Concomitant]
  3. ASPIRIN [Concomitant]
  4. TYVASO [Suspect]
     Indication: PULMONARY ARTERIAL HYPERTENSION
     Dosage: 18-54 MICROGRAMS (4 IN 1 D),INHALATION
     Route: 055
     Dates: start: 20120201
  5. NITROGLYCERIN [Concomitant]
  6. LETAIRIS [Concomitant]

REACTIONS (3)
  - DIZZINESS [None]
  - BLOOD PRESSURE ABNORMAL [None]
  - HYPOTENSION [None]
